FAERS Safety Report 21958867 (Version 1)
Quarter: 2023Q1

REPORT INFORMATION
  Report Type: Spontaneous
  Country: US (occurrence: US)
  Receive Date: 20230206
  Receipt Date: 20230206
  Transmission Date: 20230418
  Serious: No
  Sender: FDA-Public Use
  Company Number: US-AERIE-2022-002807

PATIENT

DRUGS (1)
  1. RHOPRESSA [Suspect]
     Active Substance: NETARSUDIL MESYLATE
     Indication: Exfoliation glaucoma
     Dosage: UNK
     Route: 047
     Dates: start: 20220610

REACTIONS (4)
  - Eye inflammation [Unknown]
  - Uveitis [Unknown]
  - Eye swelling [Unknown]
  - Off label use [Unknown]
